FAERS Safety Report 6471490-8 (Version None)
Quarter: 2009Q4

REPORT INFORMATION
  Report Type: 
  Country: None (occurrence: None)
  Receive Date: 20091203
  Receipt Date: 20080223
  Transmission Date: 20100525
  Serious: Yes (Other)
  Sender: FDA-Public Use
  Company Number: TR-ELI_LILLY_AND_COMPANY-TR200802005763

PATIENT
  Age: 47 Year
  Sex: Male
  Weight: 90 kg

DRUGS (9)
  1. HUMALOG [Suspect]
     Indication: TYPE 2 DIABETES MELLITUS
     Dosage: 8 IU/MORNING, 6 IU/NOON,  8 IU/EVENING AND 10 IU/NIGHT
     Route: 058
     Dates: start: 20050101
  2. HUMALOG [Suspect]
     Dosage: 6 IU, AT NOON
     Route: 058
     Dates: start: 20050101
  3. HUMALOG [Suspect]
     Dosage: 8 IU, EACH EVENING
     Route: 058
     Dates: start: 20050101
  4. HUMALOG [Suspect]
     Dosage: 10 IU, AT NIGHT
     Route: 058
     Dates: start: 20050101
  5. DESAL [Concomitant]
     Indication: CARDIOVASCULAR DISORDER
     Dosage: UNK, 2/D
     Route: 048
     Dates: start: 20080222
  6. FAMODIN [Concomitant]
     Indication: GASTRIC DISORDER
     Dosage: UNK, DAILY (1/D)
     Route: 048
     Dates: start: 20080222
  7. METOPROLOL [Concomitant]
     Dosage: UNK, UNKNOWN
     Route: 048
  8. CORASPIN [Concomitant]
     Dosage: UNK, DAILY (1/D)
     Route: 048
     Dates: start: 20080222
  9. MOXIFLOXACIN HYDROCHLORIDE [Concomitant]
     Indication: ANTIBIOTIC PROPHYLAXIS
     Dosage: UNK, DAILY (1/D)
     Route: 048
     Dates: start: 20080201

REACTIONS (1)
  - VASCULAR GRAFT [None]
